FAERS Safety Report 17416775 (Version 1)
Quarter: 2020Q1

REPORT INFORMATION
  Report Type: Spontaneous
  Country: US (occurrence: US)
  Receive Date: 20200130
  Receipt Date: 20200130
  Transmission Date: 20200409
  Serious: Yes (Other)
  Sender: FDA-Public Use
  Company Number: None

PATIENT
  Age: 68 Year
  Sex: Female

DRUGS (4)
  1. ENBREL [Suspect]
     Active Substance: ETANERCEPT
     Dosage: ?          OTHER FREQUENCY:1X WEEKLY ;?
     Route: 058
     Dates: start: 20190612
  2. FLECAINIDE [Concomitant]
     Active Substance: FLECAINIDE
  3. ASPIRIN. [Concomitant]
     Active Substance: ASPIRIN
  4. LISINOP/HCTZ TAB [Concomitant]

REACTIONS (1)
  - Oral pain [None]
